FAERS Safety Report 25105261 (Version 2)
Quarter: 2025Q2

REPORT INFORMATION
  Report Type: Report from Study
  Country: CA (occurrence: CA)
  Receive Date: 20250321
  Receipt Date: 20250401
  Transmission Date: 20250716
  Serious: Yes (Other)
  Sender: NOVARTIS
  Company Number: CA-002147023-NVSC2025CA046552

PATIENT
  Age: 53 Year
  Sex: Male

DRUGS (1)
  1. COSENTYX [Suspect]
     Active Substance: SECUKINUMAB
     Indication: Psoriasis
     Dosage: 300 MG, QMO
     Route: 058
     Dates: start: 20170908

REACTIONS (3)
  - Pneumonia [Recovering/Resolving]
  - Cough [Unknown]
  - Productive cough [Unknown]

NARRATIVE: CASE EVENT DATE: 20250201
